FAERS Safety Report 16056795 (Version 6)
Quarter: 2022Q4

REPORT INFORMATION
  Report Type: Report from Study
  Country: IN (occurrence: IN)
  Receive Date: 20190311
  Receipt Date: 20221224
  Transmission Date: 20230113
  Serious: Yes (Other)
  Sender: FDA-Public Use
  Company Number: PHHY2019IN051428

PATIENT
  Age: 38 Year
  Sex: Female

DRUGS (11)
  1. SECUKINUMAB [Suspect]
     Active Substance: SECUKINUMAB
     Indication: Psoriatic arthropathy
     Dosage: 150 MG, QMO (1ST DOSE)
     Route: 058
     Dates: start: 20181210
  2. SECUKINUMAB [Suspect]
     Active Substance: SECUKINUMAB
     Dosage: 150 MG, QMO
     Route: 058
     Dates: start: 20190102
  3. SECUKINUMAB [Suspect]
     Active Substance: SECUKINUMAB
     Dosage: 150 MG, QMO (5TH DOSE)
     Route: 058
     Dates: start: 20190202
  4. SECUKINUMAB [Suspect]
     Active Substance: SECUKINUMAB
     Dosage: 150 MG, QMO
     Route: 058
     Dates: start: 20190423
  5. SECUKINUMAB [Suspect]
     Active Substance: SECUKINUMAB
     Dosage: 150 MG, QMO
     Route: 058
     Dates: start: 20190619
  6. SECUKINUMAB [Suspect]
     Active Substance: SECUKINUMAB
     Dosage: 300 MG, QMO (VIAL)
     Route: 058
     Dates: start: 20191115
  7. SECUKINUMAB [Suspect]
     Active Substance: SECUKINUMAB
     Dosage: 300 MG, QMO (VIAL)
     Route: 058
     Dates: start: 20191213
  8. SECUKINUMAB [Suspect]
     Active Substance: SECUKINUMAB
     Dosage: 150 MG, Q4W
     Route: 058
     Dates: start: 20221125
  9. METHOTREXATE [Suspect]
     Active Substance: METHOTREXATE
     Indication: Product used for unknown indication
     Dosage: 10 MG, QW
     Route: 065
  10. ETOSHINE [Concomitant]
     Indication: Pain
     Dosage: UNK, PRN
     Route: 065
  11. DOLO [Concomitant]
     Indication: Pain
     Dosage: UNK, PRN
     Route: 065

REACTIONS (8)
  - Dysentery [Recovered/Resolved]
  - Abdominal pain [Recovered/Resolved]
  - Inflammatory bowel disease [Not Recovered/Not Resolved]
  - Gastric ulcer [Unknown]
  - Colitis [Not Recovered/Not Resolved]
  - Pyrexia [Recovering/Resolving]
  - Dyspepsia [Unknown]
  - Vomiting [Unknown]

NARRATIVE: CASE EVENT DATE: 20190306
